FAERS Safety Report 6803932-X (Version None)
Quarter: 2010Q2

REPORT INFORMATION
  Report Type: 
  Country: None (occurrence: None)
  Receive Date: 20100628
  Receipt Date: 20060421
  Transmission Date: 20101027
  Serious: No
  Sender: FDA-Public Use
  Company Number: US-PFIZER INC-2006055633

PATIENT
  Sex: Male

DRUGS (2)
  1. SUTENT [Suspect]
     Indication: RENAL CELL CARCINOMA STAGE IV
     Route: 065
  2. OXYCONTIN [Suspect]
     Indication: PAIN
     Route: 065
     Dates: start: 20060420

REACTIONS (10)
  - ARTHRALGIA [None]
  - ASTHENIA [None]
  - BACK PAIN [None]
  - BONE PAIN [None]
  - EPISTAXIS [None]
  - FATIGUE [None]
  - FEELING ABNORMAL [None]
  - HEART RATE ABNORMAL [None]
  - MUSCULOSKELETAL CHEST PAIN [None]
  - VOMITING [None]
